FAERS Safety Report 25776612 (Version 1)
Quarter: 2025Q3

REPORT INFORMATION
  Report Type: Spontaneous
  Country: US (occurrence: US)
  Receive Date: 20250909
  Receipt Date: 20250909
  Transmission Date: 20251020
  Serious: No
  Sender: DOMPE FARMACEUTICI
  Company Number: US-FARMAPROD-202503-0774

PATIENT
  Sex: Female

DRUGS (10)
  1. OXERVATE [Suspect]
     Active Substance: CENEGERMIN-BKBJ
     Indication: Neurotrophic keratopathy
     Route: 047
     Dates: start: 20250224
  2. OXERVATE [Suspect]
     Active Substance: CENEGERMIN-BKBJ
  3. TYLENOL [Concomitant]
     Active Substance: ACETAMINOPHEN
  4. ESTROGEL [Concomitant]
     Active Substance: ESTRADIOL
  5. UNSPECIFIED INGREDIENT [Concomitant]
     Active Substance: UNSPECIFIED INGREDIENT
  6. METAMUCIL [Concomitant]
     Active Substance: PLANTAGO SEED
  7. VITAMIN D3 [Concomitant]
     Active Substance: CHOLECALCIFEROL
  8. PROLIA [Concomitant]
     Active Substance: DENOSUMAB
  9. LATANOPROST [Concomitant]
     Active Substance: LATANOPROST
  10. AMLODIPINE BESYLATE [Concomitant]
     Active Substance: AMLODIPINE BESYLATE

REACTIONS (2)
  - Eye pain [Unknown]
  - Eye irritation [Unknown]
